FAERS Safety Report 9096035 (Version 2)
Quarter: 2013Q2

REPORT INFORMATION
  Report Type: Report from Study
  Country: IT (occurrence: IT)
  Receive Date: 20130207
  Receipt Date: 20130423
  Transmission Date: 20140414
  Serious: Yes (Hospitalization)
  Sender: FDA-Public Use
  Company Number: IT-CELGENEUS-083-C5013-12122220

PATIENT
  Age: 51 Year
  Sex: Male
  Weight: 62.8 kg

DRUGS (8)
  1. CC-5013 [Suspect]
     Indication: CHRONIC LYMPHOCYTIC LEUKAEMIA
     Dosage: 5 MILLIGRAM
     Route: 048
     Dates: start: 20121003
  2. CC-5013 [Suspect]
     Dosage: 2.5 MILLIGRAM
     Route: 048
     Dates: start: 20121129, end: 20121219
  3. CARDIOASPIRIN [Concomitant]
     Indication: THROMBOSIS PROPHYLAXIS
     Dosage: 100 MILLIGRAM
     Route: 048
     Dates: start: 201106, end: 20121219
  4. LANSOPRAZOLE [Concomitant]
     Indication: PROPHYLAXIS
     Dosage: 30 MILLIGRAM
     Route: 048
     Dates: start: 200907
  5. SIMVASTATIN [Concomitant]
     Indication: HYPERCHOLESTEROLAEMIA
     Dosage: 20 MILLIGRAM
     Route: 048
     Dates: start: 201106, end: 20121226
  6. ALLOPURINOL [Concomitant]
     Indication: PROPHYLAXIS
     Dosage: 300 MILLIGRAM
     Route: 048
     Dates: start: 20120912, end: 20121226
  7. LEVOFLOXACINE [Concomitant]
     Indication: COUGH
     Route: 048
     Dates: start: 20121115, end: 20121226
  8. ACETYLCYSTEINE [Concomitant]
     Indication: COUGH
     Dosage: 600 MILLIGRAM
     Route: 048
     Dates: start: 20121212, end: 20121226

REACTIONS (1)
  - Transient global amnesia [Recovered/Resolved]
